FAERS Safety Report 16413062 (Version 21)
Quarter: 2020Q4

REPORT INFORMATION
  Report Type: Spontaneous
  Country: CA (occurrence: CA)
  Receive Date: 20190611
  Receipt Date: 20201226
  Transmission Date: 20210113
  Serious: Yes (Other)
  Sender: FDA-Public Use
  Company Number: CA-CELLTRION INC.-2019CA021072

PATIENT

DRUGS (24)
  1. INFLECTRA [Suspect]
     Active Substance: INFLIXIMAB-DYYB
     Dosage: 500 MG, Q 0, 1, 2 WEEKS THEN EVERY 4 WEEKS (REINDUCTION)
     Route: 042
     Dates: start: 20190430, end: 20190430
  2. INFLECTRA [Suspect]
     Active Substance: INFLIXIMAB-DYYB
     Dosage: 10 MG/KG, Q 6 WEEKS, THEN EVERY 8 WEEKS
     Route: 042
     Dates: start: 20190621
  3. INFLECTRA [Suspect]
     Active Substance: INFLIXIMAB-DYYB
     Dosage: 1100 MG EVERY 7 WEEKS
     Route: 042
     Dates: start: 20201030
  4. ATIVAN [Concomitant]
     Active Substance: LORAZEPAM
     Indication: FISTULA
     Dosage: UNK
     Route: 065
  5. INFLECTRA [Suspect]
     Active Substance: INFLIXIMAB-DYYB
     Dosage: 10 MG/KG, Q 6 WEEKS, THEN EVERY 8 WEEKS
     Route: 042
     Dates: start: 20190621
  6. INFLECTRA [Suspect]
     Active Substance: INFLIXIMAB-DYYB
     Dosage: 10 MG/KG, Q 6 WEEKS, THEN EVERY 8 WEEKS
     Route: 042
     Dates: start: 20190621, end: 20191003
  7. INFLECTRA [Suspect]
     Active Substance: INFLIXIMAB-DYYB
     Dosage: 10 MG/KG, Q 6 WEEKS, THEN EVERY 8 WEEKS
     Route: 042
     Dates: start: 20191003, end: 20191003
  8. INFLECTRA [Suspect]
     Active Substance: INFLIXIMAB-DYYB
     Dosage: 900 MG EVERY 7 WEEKS
     Route: 042
     Dates: start: 20200109
  9. INFLECTRA [Suspect]
     Active Substance: INFLIXIMAB-DYYB
     Dosage: 900 MG EVERY 7 WEEKS
     Route: 042
     Dates: start: 20200310
  10. INFLECTRA [Suspect]
     Active Substance: INFLIXIMAB-DYYB
     Dosage: 900 MG EVERY 7 WEEKS
     Route: 042
     Dates: start: 20200415
  11. AMOXICILLIN. [Concomitant]
     Active Substance: AMOXICILLIN
     Dosage: UNK
     Route: 065
  12. CITALOPRAM [Concomitant]
     Active Substance: CITALOPRAM HYDROBROMIDE
     Dosage: 10 MG, 1X/DAY
     Route: 065
  13. INFLECTRA [Suspect]
     Active Substance: INFLIXIMAB-DYYB
     Dosage: 1000 MG EVERY 7 WEEKS
     Route: 042
     Dates: start: 20200724
  14. INFLECTRA [Suspect]
     Active Substance: INFLIXIMAB-DYYB
     Dosage: 1000 MG EVERY 7 WEEKS
     Route: 042
     Dates: start: 20200605, end: 20200910
  15. INFLECTRA [Suspect]
     Active Substance: INFLIXIMAB-DYYB
     Dosage: 900 MG EVERY 7 WEEKS
     Route: 042
     Dates: start: 20191122
  16. INFLECTRA [Suspect]
     Active Substance: INFLIXIMAB-DYYB
     Dosage: 900 MG EVERY 7 WEEKS
     Route: 042
     Dates: start: 20190403, end: 20200415
  17. PENTASA [Concomitant]
     Active Substance: MESALAMINE
     Dosage: 4 G, 2X/DAY
     Route: 048
  18. INFLECTRA [Suspect]
     Active Substance: INFLIXIMAB-DYYB
     Indication: CROHN^S DISEASE
     Dosage: 500 MG, ON 0, 2, 6 WEEKS, THEN EVERY 8 WEEKS
     Route: 042
     Dates: start: 20190403, end: 20190403
  19. INFLECTRA [Suspect]
     Active Substance: INFLIXIMAB-DYYB
     Dosage: 10 MG/KG, Q 6 WEEKS, THEN EVERY 8 WEEKS
     Route: 042
     Dates: start: 20190621
  20. INFLECTRA [Suspect]
     Active Substance: INFLIXIMAB-DYYB
     Dosage: 10 MG/KG, Q 6 WEEKS, THEN EVERY 8 WEEKS
     Route: 042
     Dates: start: 20190816
  21. INFLECTRA [Suspect]
     Active Substance: INFLIXIMAB-DYYB
     Dosage: 1000 MG EVERY 7 WEEKS
     Route: 042
     Dates: start: 20201217
  22. INFLECTRA [Suspect]
     Active Substance: INFLIXIMAB-DYYB
     Dosage: 500 MG, INDUCTION 0, 1, 2 WEEKS / FREQUENCY ASAP / MAINTENANCE EVERY 4 WEEKS (RE-INDUCTION)
     Route: 042
     Dates: start: 20190424, end: 20190430
  23. INFLECTRA [Suspect]
     Active Substance: INFLIXIMAB-DYYB
     Dosage: 1000 MG EVERY 7 WEEKS
     Route: 042
     Dates: start: 20200910
  24. FOLIC ACID. [Concomitant]
     Active Substance: FOLIC ACID
     Dosage: 1 MG, 1X/DAY (1 TAB OD)
     Route: 048

REACTIONS (21)
  - Condition aggravated [Not Recovered/Not Resolved]
  - Stress [Unknown]
  - Anxiety [Unknown]
  - Therapeutic response shortened [Unknown]
  - Product use issue [Unknown]
  - Rectal fissure [Unknown]
  - Abscess [Unknown]
  - Drug level above therapeutic [Unknown]
  - Product dose omission issue [Unknown]
  - Arthralgia [Unknown]
  - Irritability [Unknown]
  - Blood alkaline phosphatase increased [Unknown]
  - Feeling abnormal [Unknown]
  - Off label use [Unknown]
  - Intentional product use issue [Unknown]
  - Inappropriate schedule of product administration [Unknown]
  - Hyperaesthesia [Unknown]
  - Autism spectrum disorder [Unknown]
  - Weight increased [Unknown]
  - Illness [Not Recovered/Not Resolved]
  - Gastrointestinal disorder [Unknown]

NARRATIVE: CASE EVENT DATE: 20190430
